FAERS Safety Report 8894652 (Version 2)
Quarter: 2012Q4

REPORT INFORMATION
  Report Type: Report from Study
  Country: JP (occurrence: JP)
  Receive Date: 20121108
  Receipt Date: 20121227
  Transmission Date: 20130627
  Serious: Yes (Other)
  Sender: FDA-Public Use
  Company Number: JP-VERTEX PHARMACEUTICAL INC.-AE-2012-008855

PATIENT
  Age: 50 Year
  Sex: Female

DRUGS (9)
  1. VX-950 (TELAPREVIR) [Suspect]
     Indication: CHRONIC HEPATITIS C
     Dosage: 2250 mg, qd
     Route: 048
     Dates: start: 20120502, end: 20120503
  2. VX-950 (TELAPREVIR) [Suspect]
     Dosage: 1500 mg, qd
     Route: 048
     Dates: start: 20120504, end: 20120601
  3. PEGINTRON                          /01543001/ [Suspect]
     Indication: CHRONIC HEPATITIS C
     Dosage: 1.5 ?g/kg, qw
     Route: 058
     Dates: start: 20120502
  4. RIBAVIRIN [Concomitant]
     Dosage: 600 mg, qd
     Route: 048
     Dates: start: 20120502, end: 20120522
  5. RIBAVIRIN [Concomitant]
     Dosage: 200 mg, qd
     Route: 048
     Dates: start: 20120523
  6. ALLOPURINOL [Concomitant]
     Dosage: 3 DF, qd
     Route: 048
  7. LEXOTAN [Concomitant]
     Dosage: 2 mg, prn
     Route: 048
     Dates: start: 20120525
  8. AMOBAN [Concomitant]
     Dosage: 10 mg, prn
     Route: 048
     Dates: start: 20120519
  9. PZC [Concomitant]
     Dosage: UNK, prn
     Route: 048

REACTIONS (2)
  - Erythema [Recovered/Resolved]
  - Blister [Recovered/Resolved]
